FAERS Safety Report 4960345-3 (Version None)
Quarter: 2006Q1

REPORT INFORMATION
  Report Type: 
  Country: None (occurrence: None)
  Receive Date: 20060328
  Receipt Date: 20060315
  Transmission Date: 20060701
  Serious: Yes (Other)
  Sender: FDA-Public Use
  Company Number: 2006037846

PATIENT
  Age: 20 Year
  Sex: Female
  Weight: 43.0917 kg

DRUGS (3)
  1. DEPO-PROVERA [Suspect]
     Indication: CONTRACEPTION
     Dosage: SEE IMAGE
     Route: 030
     Dates: start: 20050318, end: 20050318
  2. DEPO-PROVERA [Suspect]
     Indication: CONTRACEPTION
     Dosage: SEE IMAGE
     Route: 030
     Dates: start: 20050606, end: 20050606
  3. DEPO-PROVERA [Suspect]
     Indication: CONTRACEPTION
     Dosage: SEE IMAGE
     Route: 030
     Dates: start: 20050902, end: 20050902

REACTIONS (13)
  - AMENORRHOEA [None]
  - ANAEMIA [None]
  - ARTHRALGIA [None]
  - BONE PAIN [None]
  - EAR CONGESTION [None]
  - HEART RATE DECREASED [None]
  - HYPOAESTHESIA [None]
  - LOSS OF CONSCIOUSNESS [None]
  - NASAL CONGESTION [None]
  - NERVE INJURY [None]
  - PARASITIC INFECTION INTESTINAL [None]
  - PROCEDURAL COMPLICATION [None]
  - WEIGHT DECREASED [None]
